FAERS Safety Report 9403787 (Version 1)
Quarter: 2013Q3

REPORT INFORMATION
  Report Type: Spontaneous
  Country: US (occurrence: None)
  Receive Date: 20130716
  Receipt Date: 20130716
  Transmission Date: 20140515
  Serious: Yes (Other)
  Sender: FDA-Public Use
  Company Number: None

PATIENT
  Age: 54 None
  Sex: Female

DRUGS (1)
  1. DEXTROAMPH-AMPHETER [Suspect]
     Route: 048
     Dates: start: 20130702, end: 20130705

REACTIONS (2)
  - Oral mucosal blistering [None]
  - Stomatitis [None]
